FAERS Safety Report 6069167-6 (Version None)
Quarter: 2009Q1

REPORT INFORMATION
  Report Type: 
  Country: None (occurrence: None)
  Receive Date: 20090206
  Receipt Date: 20090128
  Transmission Date: 20090719
  Serious: Yes (Hospitalization)
  Sender: FDA-Public Use
  Company Number: US-ABBOTT-09P-163-0500895-00

PATIENT
  Sex: Female
  Weight: 69.916 kg

DRUGS (12)
  1. HUMIRA [Suspect]
     Indication: CROHN'S DISEASE
     Route: 058
     Dates: start: 20080705, end: 20090123
  2. HUMIRA [Suspect]
     Indication: RHEUMATOID ARTHRITIS
  3. LIALDA [Concomitant]
     Indication: CROHN'S DISEASE
  4. TRIAMETRINE [Concomitant]
     Indication: HYPERTENSION
  5. RESTORIL [Concomitant]
     Indication: INSOMNIA
  6. CELEBREX [Concomitant]
     Indication: RHEUMATOID ARTHRITIS
  7. AMLODIPINE [Concomitant]
     Indication: INSOMNIA
  8. VISOPROLOL [Concomitant]
     Indication: HYPERTENSION
  9. PANTOPRAZOLE [Concomitant]
     Indication: GASTRIC PH DECREASED
  10. LORAZEPAM [Concomitant]
     Indication: DEPRESSION
  11. HYDROCODONE [Concomitant]
     Indication: PAIN
  12. DICYCLOMINE [Concomitant]
     Indication: DRUG USE FOR UNKNOWN INDICATION

REACTIONS (6)
  - ABASIA [None]
  - BRONCHITIS [None]
  - MOBILITY DECREASED [None]
  - NUCLEAR MAGNETIC RESONANCE IMAGING ABNORMAL [None]
  - RESPIRATORY TRACT CONGESTION [None]
  - VOMITING [None]
